FAERS Safety Report 7884229-6 (Version None)
Quarter: 2011Q4

REPORT INFORMATION
  Report Type: 
  Country: None (occurrence: None)
  Receive Date: 20111102
  Receipt Date: 20111027
  Transmission Date: 20120403
  Serious: Yes (Other)
  Sender: FDA-Public Use
  Company Number: US-PFIZER INC-2011265799

PATIENT
  Age: 72 Year
  Sex: Female

DRUGS (1)
  1. DETROL LA [Suspect]
     Indication: BLADDER DISORDER
     Dosage: UNK

REACTIONS (1)
  - URINARY RETENTION [None]
